FAERS Safety Report 23601790 (Version 1)
Quarter: 2024Q1

REPORT INFORMATION
  Report Type: Spontaneous
  Country: US (occurrence: None)
  Receive Date: 20240306
  Receipt Date: 20240306
  Transmission Date: 20240410
  Serious: Yes (Death)
  Sender: FDA-Public Use
  Company Number: None

PATIENT
  Age: 67 Year
  Sex: Male

DRUGS (6)
  1. CABENUVA [Suspect]
     Active Substance: CABOTEGRAVIR\RILPIVIRINE
     Dates: start: 20220603, end: 20240109
  2. ASPIRIN [Suspect]
     Active Substance: ASPIRIN
  3. HYDROCODONE BITARTRATE AND ACETAMINOPHEN NOS [Suspect]
     Active Substance: ACETAMINOPHEN\HYDROCODONE BITARTRATE OR HYDROCODONE BITARTRATE
  4. PREGABALIN [Suspect]
     Active Substance: PREGABALIN
  5. VITAMIN D3 [Suspect]
     Active Substance: CHOLECALCIFEROL
  6. ATORVASTATIN [Suspect]
     Active Substance: ATORVASTATIN

REACTIONS (1)
  - Pneumonia [None]

NARRATIVE: CASE EVENT DATE: 20240301
